FAERS Safety Report 19682507 (Version 2)
Quarter: 2021Q3

REPORT INFORMATION
  Report Type: Report from Study
  Country: None (occurrence: US)
  Receive Date: 20210811
  Receipt Date: 20210815
  Transmission Date: 20211014
  Serious: Yes (Hospitalization, Other)
  Sender: FDA-Public Use
  Company Number: US-ABBVIE-21K-163-4029240-00

PATIENT
  Age: 50 Year
  Sex: Male
  Weight: 79.45 kg

DRUGS (3)
  1. MODERNA COVID?19 VACCINE [Concomitant]
     Active Substance: CX-024414
     Indication: COVID-19 IMMUNISATION
     Dosage: MODERNA
     Route: 030
     Dates: start: 20210308, end: 20210308
  2. HUMIRA [Suspect]
     Active Substance: ADALIMUMAB
     Indication: COLITIS ULCERATIVE
     Dosage: CF
     Route: 058
     Dates: start: 201901
  3. MODERNA COVID?19 VACCINE [Concomitant]
     Active Substance: CX-024414
     Dosage: MODERNA
     Route: 030
     Dates: start: 20210407, end: 20210407

REACTIONS (17)
  - Rotator cuff syndrome [Recovered/Resolved]
  - Gait inability [Recovered/Resolved]
  - Joint range of motion decreased [Recovered/Resolved]
  - Musculoskeletal disorder [Recovered/Resolved]
  - Cholelithiasis [Recovered/Resolved]
  - Vertigo [Not Recovered/Not Resolved]
  - Arthralgia [Recovered/Resolved]
  - Gait inability [Recovered/Resolved]
  - Seizure [Recovered/Resolved]
  - Hypotension [Not Recovered/Not Resolved]
  - Arthralgia [Recovered/Resolved]
  - Dysstasia [Recovered/Resolved]
  - Pancreatitis [Recovered/Resolved]
  - Nephrolithiasis [Recovered/Resolved]
  - Dizziness [Not Recovered/Not Resolved]
  - Joint range of motion decreased [Recovered/Resolved]
  - Musculoskeletal disorder [Recovered/Resolved]

NARRATIVE: CASE EVENT DATE: 201908
